FAERS Safety Report 11263249 (Version 1)
Quarter: 2015Q3

REPORT INFORMATION
  Report Type: Spontaneous
  Country: US (occurrence: US)
  Receive Date: 20150712
  Receipt Date: 20150712
  Transmission Date: 20151125
  Serious: No
  Sender: FDA-Public Use
  Company Number: US-ASTRAZENECA-2015SE64104

PATIENT
  Age: 72 Year
  Sex: Male

DRUGS (4)
  1. INVOKANA [Concomitant]
     Active Substance: CANAGLIFLOZIN
  2. JANUVIA [Concomitant]
     Active Substance: SITAGLIPTIN PHOSPHATE
  3. BYDUREON [Suspect]
     Active Substance: EXENATIDE
     Indication: TYPE 2 DIABETES MELLITUS
     Dosage: 2 MG 4 COUNT, ONCE A WEEK
     Route: 058
  4. CRESTOR [Suspect]
     Active Substance: ROSUVASTATIN CALCIUM
     Dosage: DOSE UNKNOWN
     Route: 048

REACTIONS (1)
  - Injection site nodule [Unknown]
